FAERS Safety Report 6752822-X (Version None)
Quarter: 2010Q2

REPORT INFORMATION
  Report Type: 
  Country: None (occurrence: None)
  Receive Date: 20100603
  Receipt Date: 20100526
  Transmission Date: 20101027
  Serious: Yes (Hospitalization)
  Sender: FDA-Public Use
  Company Number: US-BIOGENIDEC-2010BI017046

PATIENT
  Age: 29 Year
  Sex: Female
  Weight: 74 kg

DRUGS (4)
  1. TYSABRI [Suspect]
     Indication: CROHN'S DISEASE
     Route: 042
     Dates: start: 20091215, end: 20100501
  2. TYSABRI [Suspect]
     Route: 042
     Dates: start: 20100525
  3. MAXIVATE [Concomitant]
     Route: 061
  4. TRINESSA [Concomitant]
     Route: 048

REACTIONS (2)
  - COLOSTOMY CLOSURE [None]
  - PELVIC ABSCESS [None]
